FAERS Safety Report 8299682-6 (Version None)
Quarter: 2012Q2

REPORT INFORMATION
  Report Type: 
  Country: None (occurrence: None)
  Receive Date: 20120419
  Receipt Date: 20120413
  Transmission Date: 20120825
  Serious: Yes (Hospitalization, Other)
  Sender: FDA-Public Use
  Company Number: US-ELI_LILLY_AND_COMPANY-US201106000498

PATIENT
  Sex: Female
  Weight: 45.351 kg

DRUGS (11)
  1. MEMANTINE HCL [Concomitant]
  2. SYNTHROID [Concomitant]
  3. SODIUM CHLORIDE [Concomitant]
     Dosage: 30 MG, UNK
  4. FORTEO [Suspect]
     Dosage: 20 UG, QD
  5. NORVASC [Concomitant]
  6. MIRTAZAPINE [Concomitant]
  7. PAROXETINE [Concomitant]
  8. METOPROLOL TARTRATE [Concomitant]
  9. DONEPEZIL HCL [Concomitant]
  10. FORTEO [Suspect]
     Indication: OSTEOPOROSIS
     Dosage: 20 UG, QD
     Route: 058
     Dates: start: 20101201, end: 20110517
  11. CALCIUM WITH VITAMIN D             /00944201/ [Concomitant]

REACTIONS (4)
  - HIP FRACTURE [None]
  - FALL [None]
  - MALAISE [None]
  - DEHYDRATION [None]
